FAERS Safety Report 8607634-9 (Version None)
Quarter: 2012Q3

REPORT INFORMATION
  Report Type: 
  Country: None (occurrence: None)
  Receive Date: 20120821
  Receipt Date: 20120813
  Transmission Date: 20120928
  Serious: Yes (Other)
  Sender: FDA-Public Use
  Company Number: GB-SANOFI-AVENTIS-2012SA058428

PATIENT
  Age: 76 Year
  Sex: Female
  Weight: 70 kg

DRUGS (3)
  1. CLOPIDOGREL BISULFATE [Suspect]
     Dates: start: 20120112, end: 20120710
  2. LOSARTAN POTASSIUM [Concomitant]
     Indication: HYPERTENSION
     Dates: start: 20040101
  3. AMILORIDE HCL AND HYDROCHLOROTHIAZIDE [Concomitant]
     Indication: HYPERTENSION
     Dosage: DOSE:1 UNIT(S)
     Dates: start: 20040101

REACTIONS (4)
  - INFLUENZA LIKE ILLNESS [None]
  - DEPRESSION [None]
  - COUGH [None]
  - DISABILITY [None]
